FAERS Safety Report 6735169-7 (Version None)
Quarter: 2010Q2

REPORT INFORMATION
  Report Type: 
  Country: None (occurrence: None)
  Receive Date: 20100521
  Receipt Date: 20100515
  Transmission Date: 20101027
  Serious: Yes (Other)
  Sender: FDA-Public Use
  Company Number: US-BAYER-200935359NA

PATIENT
  Age: 57 Year
  Sex: Female

DRUGS (4)
  1. BETASERON [Suspect]
     Indication: MULTIPLE SCLEROSIS
     Route: 058
     Dates: start: 20090226, end: 20090415
  2. BETASERON [Suspect]
     Dosage: TOTAL DAILY DOSE: 8 MIU
     Route: 058
     Dates: start: 20090812
  3. BETASERON [Suspect]
     Route: 058
     Dates: start: 19970505, end: 20040505
  4. BETASERON [Suspect]
     Dosage: 8 MIU SUBCUTANEOUS QOD
     Route: 058
     Dates: start: 20100309

REACTIONS (3)
  - CATARACT [None]
  - CONFUSIONAL STATE [None]
  - DISORIENTATION [None]
